FAERS Safety Report 5568355-2 (Version None)
Quarter: 2007Q4

REPORT INFORMATION
  Report Type: 
  Country: None (occurrence: None)
  Receive Date: 20071220
  Receipt Date: 20071220
  Transmission Date: 20080405
  Serious: Yes (Hospitalization)
  Sender: FDA-Public Use
  Company Number: PHHO2005SE10697

PATIENT
  Age: 62 Year
  Sex: Male

DRUGS (4)
  1. ZOLEDRONIC ACID [Suspect]
     Indication: OSTEOPOROTIC FRACTURE
     Dosage: DOUBLE BLIND
     Route: 042
     Dates: start: 20041025
  2. ZOLEDRONIC ACID [Suspect]
     Dosage: 5MG, ONCE YEARLY
  3. VITAMIN D [Concomitant]
     Indication: OSTEOPOROTIC FRACTURE
  4. CALCIUM CARBONATE [Concomitant]
     Indication: OSTEOPOROTIC FRACTURE

REACTIONS (3)
  - HIP ARTHROPLASTY [None]
  - OSTEONECROSIS [None]
  - PAIN [None]
